FAERS Safety Report 4652962-5 (Version None)
Quarter: 2005Q2

REPORT INFORMATION
  Report Type: 
  Country: None (occurrence: None)
  Receive Date: 20050503
  Receipt Date: 20050419
  Transmission Date: 20051028
  Serious: Yes (Other)
  Sender: FDA-Public Use
  Company Number: 2005S1000070

PATIENT
  Age: 72 Year
  Sex: Female

DRUGS (4)
  1. CUBICIN [Suspect]
     Indication: AORTIC DISORDER
     Dosage: Q48H; IV
     Route: 042
  2. CUBICIN [Suspect]
     Indication: ENDOCARDITIS
     Dosage: Q48H; IV
     Route: 042
  3. CUBICIN [Suspect]
     Indication: STREPTOCOCCAL INFECTION
     Dosage: Q48H; IV
     Route: 042
  4. EDECRIN [Concomitant]

REACTIONS (5)
  - COUGH [None]
  - ELECTROLYTE IMBALANCE [None]
  - FEELING ABNORMAL [None]
  - NAUSEA [None]
  - TORSADE DE POINTES [None]
